FAERS Safety Report 17587095 (Version 2)
Quarter: 2020Q4

REPORT INFORMATION
  Report Type: Spontaneous
  Country: NL (occurrence: NL)
  Receive Date: 20200326
  Receipt Date: 20201019
  Transmission Date: 20210113
  Serious: Yes (Death, Life-Threatening, Hospitalization, Other)
  Sender: FDA-Public Use
  Company Number: NL-MYLANLABS-2020M1031749

PATIENT
  Age: 74 Year
  Sex: Female

DRUGS (66)
  1. CLONIDINE. [Concomitant]
     Active Substance: CLONIDINE
     Dosage: UNK
     Dates: start: 20191130, end: 20191130
  2. INSULIN GLARGINE [Concomitant]
     Active Substance: INSULIN GLARGINE
     Dosage: UNK
  3. INSULIN GLARGINE [Concomitant]
     Active Substance: INSULIN GLARGINE
     Dosage: UNK
     Dates: start: 20191227
  4. INSULIN ASPART [Concomitant]
     Active Substance: INSULIN ASPART
     Dosage: UNK
     Dates: start: 20191127
  5. AMIODARONE [Concomitant]
     Active Substance: AMIODARONE
     Dosage: UNK
     Dates: start: 20191209
  6. PROPOFOL. [Concomitant]
     Active Substance: PROPOFOL
     Dosage: 10 MG/ML
     Dates: start: 20191128, end: 20191128
  7. COFACT [Suspect]
     Active Substance: COAGULATION FACTOR IX HUMAN\COAGULATION FACTOR VII HUMAN\COAGULATION FACTOR X HUMAN\PROTEIN C\PROTEIN S HUMAN\PROTHROMBIN
     Indication: HAEMOSTASIS
  8. LABETALOL [Suspect]
     Active Substance: LABETALOL\LABETALOL HYDROCHLORIDE
     Indication: HAEMORRHAGE INTRACRANIAL
     Dosage: UNK(0 - 75 MG/H, INTRAVENOUS)
     Route: 042
     Dates: start: 20191127, end: 20191128
  9. FUROSEMIDE. [Concomitant]
     Active Substance: FUROSEMIDE
     Dosage: UNK
  10. INSULIN ASPART [Concomitant]
     Active Substance: INSULIN ASPART
     Dosage: UNK
     Dates: start: 20191127
  11. AMIODARONE [Concomitant]
     Active Substance: AMIODARONE
     Dosage: UNK
     Dates: start: 20191204, end: 20191204
  12. NIFEDIPINE. [Concomitant]
     Active Substance: NIFEDIPINE
     Dosage: 5 MILLIGRAM
     Dates: start: 20191203
  13. ROCURONIUM [Concomitant]
     Active Substance: ROCURONIUM BROMIDE
     Dosage: 10 MG/ML
     Dates: start: 20191208, end: 20191208
  14. MAGNESIUM SULFATE. [Concomitant]
     Active Substance: MAGNESIUM SULFATE
     Dosage: 2000 MG
     Dates: start: 20191203, end: 20191203
  15. PROPOFOL. [Concomitant]
     Active Substance: PROPOFOL
     Dosage: 10 MG/ML
     Dates: start: 20191128, end: 20191128
  16. ATROPINE. [Concomitant]
     Active Substance: ATROPINE
     Dosage: 0.5 MG/ML
     Dates: start: 20191128, end: 20191208
  17. POTASSIUM CHLORIDE. [Concomitant]
     Active Substance: POTASSIUM CHLORIDE
     Dosage: 75 MG/ML
     Dates: start: 20191128
  18. LIDOCAINE. [Concomitant]
     Active Substance: LIDOCAINE
     Dosage: 10 MG/ML
     Dates: start: 20191128, end: 20191128
  19. METOPROLOL. [Suspect]
     Active Substance: METOPROLOL
     Indication: HYPERTENSION
     Dosage: 100 MG, QD
     Route: 048
  20. COFACT [Suspect]
     Active Substance: COAGULATION FACTOR IX HUMAN\COAGULATION FACTOR VII HUMAN\COAGULATION FACTOR X HUMAN\PROTEIN C\PROTEIN S HUMAN\PROTHROMBIN
     Indication: CEREBRAL HAEMORRHAGE
     Dosage: 3000 INTERNATIONAL UNIT, TOTAL(3000 IE, ONCE)
     Route: 042
     Dates: start: 20191127, end: 20191127
  21. COFACT [Suspect]
     Active Substance: COAGULATION FACTOR IX HUMAN\COAGULATION FACTOR VII HUMAN\COAGULATION FACTOR X HUMAN\PROTEIN C\PROTEIN S HUMAN\PROTHROMBIN
     Indication: PROCOAGULANT THERAPY
  22. FUROSEMIDE. [Concomitant]
     Active Substance: FUROSEMIDE
     Dosage: 10 MG/ML
     Dates: start: 20191130, end: 20191130
  23. FUROSEMIDE. [Concomitant]
     Active Substance: FUROSEMIDE
     Dosage: 10 MG/ML
     Dates: start: 20191201, end: 20191201
  24. PARACETAMOL [Concomitant]
     Active Substance: ACETAMINOPHEN
     Dosage: UNK
  25. NIFEDIPINE. [Concomitant]
     Active Substance: NIFEDIPINE
     Dosage: 5 MILLIGRAM
     Dates: start: 20191202, end: 20191202
  26. MAGNESIUM SULFATE. [Concomitant]
     Active Substance: MAGNESIUM SULFATE
     Dosage: 2000 MG
     Dates: start: 20191128, end: 20191128
  27. PHOSPHATE                          /01053101/ [Concomitant]
     Active Substance: SODIUM PHOSPHATE\SODIUM PHOSPHATE, MONOBASIC
     Dosage: 1 MM OL ML
     Dates: start: 20191203, end: 20191203
  28. XARELTO [Suspect]
     Active Substance: RIVAROXABAN
     Indication: ATRIAL FIBRILLATION
     Dosage: 20 MG, QD
     Route: 048
     Dates: start: 20171207, end: 20191127
  29. PANTOPRAZOLE [Concomitant]
     Active Substance: PANTOPRAZOLE
     Dosage: 20 MG
     Dates: start: 20191127
  30. INSULIN GLARGINE [Concomitant]
     Active Substance: INSULIN GLARGINE
     Dosage: UNK
     Dates: start: 20191227
  31. GLUCOSE 5% BRAUN [Concomitant]
     Active Substance: DEXTROSE
     Dosage: UNK
     Dates: start: 20191128, end: 20191128
  32. FISH OIL OMEGA 3 [Concomitant]
     Active Substance: FISH OIL
     Dosage: UNK
  33. DIAMOX SEQUELS [Concomitant]
     Active Substance: ACETAZOLAMIDE
     Dosage: UNK
     Dates: start: 20191130, end: 20191130
  34. PEPTAMEN AF [Concomitant]
     Dosage: UNK
     Dates: start: 20191128, end: 20191224
  35. STEROFUNDIN ISO [Concomitant]
     Dosage: 500 ML
     Dates: start: 20191208, end: 20191209
  36. FRAXIPARINE [Concomitant]
     Active Substance: NADROPARIN CALCIUM
     Dosage: 9500 IU ML
     Dates: start: 20191127
  37. AMIODARONE [Concomitant]
     Active Substance: AMIODARONE
     Dosage: UNK
  38. AMIODARONE [Concomitant]
     Active Substance: AMIODARONE
     Dosage: UNK
     Dates: start: 20191201, end: 20191201
  39. DIAMOX SEQUELS [Concomitant]
     Active Substance: ACETAZOLAMIDE
     Dosage: UNK
  40. NIFEDIPINE. [Concomitant]
     Active Substance: NIFEDIPINE
     Dosage: 5 MILLIGRAM
     Dates: start: 20191207
  41. ROCURONIUM [Concomitant]
     Active Substance: ROCURONIUM BROMIDE
     Dosage: 10 MG/ML
     Dates: start: 20191128, end: 20191208
  42. MAGNESIUM SULFATE. [Concomitant]
     Active Substance: MAGNESIUM SULFATE
     Dosage: 2000 MG
     Dates: start: 20191201, end: 20191201
  43. ONDANSETRON [Concomitant]
     Active Substance: ONDANSETRON
     Dosage: 2 MG/ML
     Dates: start: 20191127, end: 20191127
  44. CEFAZOLIN [Concomitant]
     Active Substance: CEFAZOLIN
     Dosage: 100 MG/ML
     Dates: start: 20191128, end: 20191128
  45. MORPHINE [Concomitant]
     Active Substance: MORPHINE
     Dosage: 1 MG/ML
     Dates: start: 20191207
  46. FRAXIPARINE [Concomitant]
     Active Substance: NADROPARIN CALCIUM
     Dosage: UNK
  47. INSULIN ASPART [Concomitant]
     Active Substance: INSULIN ASPART
     Dosage: UNK
  48. NIFEDIPINE. [Concomitant]
     Active Substance: NIFEDIPINE
     Dosage: UNK
  49. NIFEDIPINE. [Concomitant]
     Active Substance: NIFEDIPINE
     Dosage: 5 MILLIGRAM
     Dates: start: 20191203, end: 20191203
  50. MAGNESIUM SULFATE. [Concomitant]
     Active Substance: MAGNESIUM SULFATE
     Dosage: 2000 MG
     Dates: start: 20191209
  51. PROPOFOL. [Concomitant]
     Active Substance: PROPOFOL
     Dosage: 10 MG/ML
     Dates: start: 20191208, end: 20191208
  52. MOVICOLON [Concomitant]
     Active Substance: POLYETHYLENE GLYCOL 3350\POTASSIUM CHLORIDE\SODIUM BICARBONATE\SODIUM CHLORIDE
     Dosage: 1.8 G
     Dates: start: 20191206
  53. FUROSEMIDE. [Concomitant]
     Active Substance: FUROSEMIDE
     Dosage: 10 MG/ML
     Dates: start: 20191202, end: 20191202
  54. AMIODARONE [Concomitant]
     Active Substance: AMIODARONE
     Dosage: UNK
     Dates: start: 20191209
  55. GLUCOSE 5% BRAUN [Concomitant]
     Active Substance: DEXTROSE
     Dosage: UNK
     Dates: start: 20191127, end: 20191127
  56. DIAMOX SEQUELS [Concomitant]
     Active Substance: ACETAZOLAMIDE
     Dosage: UNK
     Dates: start: 20191203, end: 20191203
  57. POTASSIUM CHLORIDE. [Concomitant]
     Active Substance: POTASSIUM CHLORIDE
     Dosage: 75 MG/ML
     Dates: start: 20191207
  58. MORPHINE [Concomitant]
     Active Substance: MORPHINE
     Dosage: 1 MG/ML
     Dates: start: 20191127
  59. PANTOPRAZOLE [Concomitant]
     Active Substance: PANTOPRAZOLE
     Dosage: UNK
     Dates: start: 20191127
  60. FUROSEMIDE. [Concomitant]
     Active Substance: FUROSEMIDE
     Dosage: 10 MG/ML
     Dates: start: 20191129, end: 20191129
  61. CLONIDINE. [Concomitant]
     Active Substance: CLONIDINE
     Dosage: UNK
  62. SUFENTANIL [Concomitant]
     Active Substance: SUFENTANIL
     Dosage: 5 MCG ML
     Dates: start: 20191128, end: 20191128
  63. MAGNESIUM SULFATE. [Concomitant]
     Active Substance: MAGNESIUM SULFATE
     Dosage: 2000 MG
     Dates: start: 20191201, end: 20191201
  64. ONDANSETRON [Concomitant]
     Active Substance: ONDANSETRON
     Dosage: 2 MG/ML
     Dates: start: 20191128, end: 20191128
  65. STEROFUNDIN ISO [Concomitant]
     Dosage: 500 ML
     Dates: start: 20191128, end: 20191128
  66. PHOSPHATE                          /01053101/ [Concomitant]
     Active Substance: SODIUM PHOSPHATE\SODIUM PHOSPHATE, MONOBASIC
     Dosage: 1 MM OL ML
     Dates: start: 20191204, end: 20191204

REACTIONS (8)
  - Hypotension [Recovered/Resolved]
  - Fall [Unknown]
  - Cerebral haemorrhage [Unknown]
  - Aspiration [Fatal]
  - Respiratory failure [Fatal]
  - Hydrocephalus [Recovering/Resolving]
  - Pulseless electrical activity [Recovered/Resolved]
  - Pneumonia [Recovering/Resolving]

NARRATIVE: CASE EVENT DATE: 20191127
